FAERS Safety Report 14860933 (Version 1)
Quarter: 2018Q2

REPORT INFORMATION
  Report Type: Spontaneous
  Country: IT (occurrence: IT)
  Receive Date: 20180508
  Receipt Date: 20180508
  Transmission Date: 20180711
  Serious: Yes (Death, Other)
  Sender: FDA-Public Use
  Company Number: IT-SYNTHON BV-NL01PV18_46914

PATIENT
  Age: 63 Year
  Sex: Male

DRUGS (15)
  1. HYDROCHLOROTHIAZIDE. [Interacting]
     Active Substance: HYDROCHLOROTHIAZIDE
     Dosage: UNK
  2. CLONIDINE. [Interacting]
     Active Substance: CLONIDINE
     Dosage: UNK
  3. VALSARTAN. [Interacting]
     Active Substance: VALSARTAN
  4. ACETYLSALICYLIC ACID [Interacting]
     Active Substance: ASPIRIN
     Dosage: UNK
  5. CALCIUM [Interacting]
     Active Substance: CALCIUM
     Dosage: UNK
  6. PARICALCITOL. [Interacting]
     Active Substance: PARICALCITOL
     Dosage: UNK
  7. QUINAPRIL. [Interacting]
     Active Substance: QUINAPRIL
     Dosage: UNK
  8. PREGABALIN. [Interacting]
     Active Substance: PREGABALIN
     Dosage: UNK
  9. GEMFIBROZIL. [Interacting]
     Active Substance: GEMFIBROZIL
     Dosage: UNK
  10. INFLUENZA VIRUS VACCINE [Interacting]
     Active Substance: INFLUENZA VIRUS VACCINE
     Dosage: UNK
  11. TAMSULOSIN [Suspect]
     Active Substance: TAMSULOSIN
     Dosage: UNK
  12. FISH OIL [Interacting]
     Active Substance: FISH OIL
     Dosage: UNK
  13. TORSEMIDE. [Interacting]
     Active Substance: TORSEMIDE
  14. SIMVASTATIN. [Interacting]
     Active Substance: SIMVASTATIN
     Dosage: UNK
  15. INSULIN [Interacting]
     Active Substance: INSULIN NOS
     Dosage: UNK

REACTIONS (19)
  - Mobility decreased [Unknown]
  - Hypotonia [Unknown]
  - Paralysis [Unknown]
  - Guillain-Barre syndrome [Unknown]
  - Hypoaesthesia [Unknown]
  - Nephropathy [Unknown]
  - Pneumonia [Unknown]
  - Renal impairment [Unknown]
  - Chromaturia [Unknown]
  - Sepsis [Unknown]
  - Muscular weakness [Unknown]
  - Pain in extremity [Unknown]
  - Arrhythmia [Unknown]
  - Death [Fatal]
  - Supraventricular tachycardia [Unknown]
  - Cardiopulmonary failure [Unknown]
  - Drug interaction [Unknown]
  - Rhabdomyolysis [Unknown]
  - Cardiac failure [Unknown]
